FAERS Safety Report 11184707 (Version 1)
Quarter: 2015Q2

REPORT INFORMATION
  Report Type: Spontaneous
  Country: US (occurrence: US)
  Receive Date: 20150612
  Receipt Date: 20150612
  Transmission Date: 20150821
  Serious: Yes (Death)
  Sender: FDA-Public Use
  Company Number: US-MALLINCKRODT-T201502376

PATIENT
  Age: 84 Year
  Sex: Male
  Weight: 63 kg

DRUGS (2)
  1. FENTANYL TRANSDERMAL SYSTEM [Suspect]
     Active Substance: FENTANYL
     Indication: SCIATICA
     Dosage: UNK
     Route: 062
     Dates: end: 20150123
  2. MORPHINE [Concomitant]
     Active Substance: MORPHINE
     Indication: SCIATICA
     Route: 060

REACTIONS (1)
  - Cardiac failure congestive [Fatal]

NARRATIVE: CASE EVENT DATE: 20150123
